FAERS Safety Report 10177860 (Version 4)
Quarter: 2014Q3

REPORT INFORMATION
  Report Type: Spontaneous
  Country: US (occurrence: US)
  Receive Date: 20140516
  Receipt Date: 20140926
  Transmission Date: 20150326
  Serious: Yes (Hospitalization, Other)
  Sender: FDA-Public Use
  Company Number: US-GILEAD-2014-0102622

PATIENT
  Age: 65 Year
  Sex: Male

DRUGS (2)
  1. LETAIRIS [Suspect]
     Active Substance: AMBRISENTAN
     Indication: CONNECTIVE TISSUE DISORDER
  2. LETAIRIS [Suspect]
     Active Substance: AMBRISENTAN
     Indication: PULMONARY HYPERTENSION
     Dosage: 10 MG, QD
     Route: 065
     Dates: start: 20130201

REACTIONS (3)
  - Respiratory failure [Recovering/Resolving]
  - Abasia [Unknown]
  - Dyspnoea [Unknown]
